FAERS Safety Report 6242000-5 (Version None)
Quarter: 2009Q2

REPORT INFORMATION
  Report Type: 
  Country: None (occurrence: None)
  Receive Date: 20090622
  Receipt Date: 20090615
  Transmission Date: 20091009
  Serious: Yes (Other)
  Sender: FDA-Public Use
  Company Number: CHPA2009US13617

PATIENT
  Age: 80 Year
  Sex: Male
  Weight: 80.7 kg

DRUGS (2)
  1. VOLTAREN [Suspect]
     Indication: JOINT SWELLING
     Dosage: 4 G, BID, TOPICAL
     Route: 061
     Dates: end: 20090616
  2. VOLTAREN [Suspect]
     Indication: OSTEOARTHRITIS
     Dosage: 4 G, BID, TOPICAL
     Route: 061
     Dates: end: 20090616

REACTIONS (2)
  - RASH ERYTHEMATOUS [None]
  - RASH VESICULAR [None]
